FAERS Safety Report 5986474-3 (Version None)
Quarter: 2008Q4

REPORT INFORMATION
  Report Type: 
  Country: None (occurrence: None)
  Receive Date: 20081209
  Receipt Date: 20081009
  Transmission Date: 20090506
  Serious: Yes (Hospitalization)
  Sender: FDA-Public Use
  Company Number: US-AMGEN-QUU278596

PATIENT
  Sex: Female

DRUGS (2)
  1. ENBREL [Suspect]
     Indication: RHEUMATOID ARTHRITIS
     Route: 058
     Dates: start: 20050101
  2. METHOTREXATE [Concomitant]
     Dates: start: 19980101

REACTIONS (8)
  - ABASIA [None]
  - CELLULITIS [None]
  - CHILLS [None]
  - DYSURIA [None]
  - EAR INFECTION [None]
  - FLUSHING [None]
  - JOINT LOCK [None]
  - ORAL HERPES [None]
